FAERS Safety Report 9966077 (Version 1)
Quarter: 2014Q1

REPORT INFORMATION
  Report Type: Spontaneous
  Country: US (occurrence: US)
  Receive Date: 20140305
  Receipt Date: 20140305
  Transmission Date: 20141002
  Serious: No
  Sender: FDA-Public Use
  Company Number: US-ABBVIE-13P-163-1122169-00

PATIENT
  Age: 30 Year
  Sex: Female
  Weight: 68.1 kg

DRUGS (9)
  1. HUMIRA [Suspect]
     Indication: CROHN^S DISEASE
     Route: 058
     Dates: start: 201304, end: 201304
  2. HUMIRA [Suspect]
     Route: 058
     Dates: start: 201304, end: 201304
  3. HUMIRA [Suspect]
     Route: 058
     Dates: start: 201305, end: 201305
  4. LIALDA [Concomitant]
     Indication: CROHN^S DISEASE
  5. KLONAZEPAM [Concomitant]
     Indication: DEPRESSION
  6. AMBIEN [Concomitant]
     Indication: INSOMNIA
  7. PROTONIX [Concomitant]
     Indication: GASTRITIS
  8. PROTONIX [Concomitant]
     Indication: ULCER
  9. PROMETHAZINE [Concomitant]
     Indication: CROHN^S DISEASE

REACTIONS (3)
  - Stress [Unknown]
  - Injection site pain [Not Recovered/Not Resolved]
  - Alopecia [Not Recovered/Not Resolved]
